FAERS Safety Report 8573755-2 (Version None)
Quarter: 2012Q3

REPORT INFORMATION
  Report Type: 
  Country: None (occurrence: None)
  Receive Date: 20120806
  Receipt Date: 20120525
  Transmission Date: 20120928
  Serious: Yes (Life-Threatening, Hospitalization)
  Sender: FDA-Public Use
  Company Number: AU-GLAXOSMITHKLINE-B0804530A

PATIENT
  Sex: Female

DRUGS (2)
  1. XELODA [Suspect]
     Indication: BREAST CANCER
     Route: 065
     Dates: start: 20120123, end: 20120701
  2. TYKERB [Suspect]
     Indication: BREAST CANCER
     Route: 065
     Dates: start: 20120123, end: 20120701

REACTIONS (10)
  - DYSPNOEA [None]
  - CHEST PAIN [None]
  - DYSGEUSIA [None]
  - VOMITING [None]
  - DIARRHOEA [None]
  - NAUSEA [None]
  - PULMONARY THROMBOSIS [None]
  - PERICARDIAL EFFUSION [None]
  - HEADACHE [None]
  - DECREASED APPETITE [None]
